FAERS Safety Report 8702836 (Version 2)
Quarter: 2012Q4

REPORT INFORMATION
  Report Type: Report from Study
  Country: CA (occurrence: CA)
  Receive Date: 20120803
  Receipt Date: 20121126
  Transmission Date: 20130627
  Serious: Yes (Hospitalization, Other)
  Sender: FDA-Public Use
  Company Number: CA-JNJFOC-20120713089

PATIENT
  Sex: Male
  Weight: 46 kg

DRUGS (2)
  1. REMICADE [Suspect]
     Indication: CROHN^S DISEASE
     Route: 042
     Dates: start: 2010
  2. REMICADE [Suspect]
     Indication: CROHN^S DISEASE
     Route: 042
     Dates: start: 20120123

REACTIONS (9)
  - Gastric haemorrhage [Recovering/Resolving]
  - Weight decreased [Unknown]
  - Haematochezia [Unknown]
  - Cachexia [Unknown]
  - Pyrexia [Unknown]
  - Night sweats [Unknown]
  - Asthenia [Unknown]
  - Listless [Unknown]
  - Decreased appetite [Unknown]
